FAERS Safety Report 10404592 (Version 1)
Quarter: 2014Q2

REPORT INFORMATION
  Report Type: Spontaneous
  Country: US (occurrence: None)
  Receive Date: 20140530
  Receipt Date: 20140530
  Transmission Date: 20141212
  Serious: Yes (Other)
  Sender: FDA-Public Use
  Company Number: AUR-APL-2013-06849

PATIENT
  Age: 62 Year
  Sex: Female
  Weight: 83.9 kg

DRUGS (2)
  1. VENLAFAXINE (VENLAFAXINE) [Suspect]
     Indication: DEPRESSION
     Dates: end: 20130806
  2. EFFEXOR XR (VENLAFAXINE HYDROCHLORIDE) (75 MILLIGRAM, CAPSULE) (VENLAFAXINE HYDROCHLORIDE) [Suspect]
     Indication: DEPRESSION
     Dosage: 70 MG (35 MG,2 IN 1 D)

REACTIONS (1)
  - Cerebrovascular accident [None]
